FAERS Safety Report 12542817 (Version 1)
Quarter: 2016Q3

REPORT INFORMATION
  Report Type: Spontaneous
  Country: US (occurrence: US)
  Receive Date: 20160709
  Receipt Date: 20160709
  Transmission Date: 20161109
  Serious: No
  Sender: FDA-Public Use
  Company Number: US-009507513-1607USA002215

PATIENT
  Age: 19 Year
  Sex: Female

DRUGS (1)
  1. NEXPLANON [Suspect]
     Active Substance: ETONOGESTREL
     Indication: CONTRACEPTION
     Dosage: 1 IMPLANT ONCE PER 3 YEARS
     Route: 059
     Dates: start: 20160516

REACTIONS (7)
  - Implant site pain [Unknown]
  - Implant site erythema [Unknown]
  - Injection site swelling [Unknown]
  - Implant site pain [Recovered/Resolved]
  - Arthropod bite [Unknown]
  - Implant site swelling [Recovered/Resolved]
  - Implant site erythema [Recovered/Resolved]

NARRATIVE: CASE EVENT DATE: 2016
